FAERS Safety Report 15678752 (Version 1)
Quarter: 2018Q4

REPORT INFORMATION
  Report Type: Spontaneous
  Country: US (occurrence: US)
  Receive Date: 20181201
  Receipt Date: 20181201
  Transmission Date: 20190205
  Serious: No
  Sender: FDA-Public Use
  Company Number: None

PATIENT
  Age: 31 Year
  Sex: Male
  Weight: 74.25 kg

DRUGS (3)
  1. DEXTROAMPHET SACCHARAT, AMPHET ASPARTATE, DEXTROAMPHET SULFATE AND AMPHET SULFAT [Suspect]
     Active Substance: AMPHETAMINE ASPARTATE\AMPHETAMINE SULFATE\DEXTROAMPHETAMINE SACCHARATE\DEXTROAMPHETAMINE SULFATE
     Indication: ATTENTION DEFICIT/HYPERACTIVITY DISORDER
     Dosage: ?          QUANTITY:1 TABLET(S);?
     Route: 048
     Dates: start: 20181130, end: 20181201
  2. 20 MG ADDERAAL IR 3X DAILY [Concomitant]
  3. OMEPRAZOLE DAILY [Concomitant]

REACTIONS (5)
  - Product substitution issue [None]
  - Feeling abnormal [None]
  - Dizziness [None]
  - Chest discomfort [None]
  - Pain [None]

NARRATIVE: CASE EVENT DATE: 20181201
